FAERS Safety Report 16707849 (Version 1)
Quarter: 2019Q3

REPORT INFORMATION
  Report Type: Spontaneous
  Country: US (occurrence: US)
  Receive Date: 20190815
  Receipt Date: 20190815
  Transmission Date: 20191004
  Serious: No
  Sender: FDA-Public Use
  Company Number: US-ELI_LILLY_AND_COMPANY-US201907016841

PATIENT
  Age: 38 Year
  Sex: Female
  Weight: 99.77 kg

DRUGS (5)
  1. ZYPREXA ZYDIS [Suspect]
     Active Substance: OLANZAPINE
     Indication: PRODUCT USED FOR UNKNOWN INDICATION
     Dosage: 5 MG, EACH MORNING
     Route: 065
     Dates: start: 2008
  2. OLANZAPINE APOTEX [Suspect]
     Active Substance: OLANZAPINE
     Dosage: UNK
  3. OLANZAPINE APOTEX [Suspect]
     Active Substance: OLANZAPINE
     Indication: PRODUCT USED FOR UNKNOWN INDICATION
     Dosage: UNK, UNKNOWN
     Route: 065
  4. ZYPREXA ZYDIS [Suspect]
     Active Substance: OLANZAPINE
     Dosage: 5 MG, PRN
     Route: 065
     Dates: start: 2008
  5. ZYPREXA ZYDIS [Suspect]
     Active Substance: OLANZAPINE
     Dosage: 5 MG, EACH EVENING
     Route: 065
     Dates: start: 2008

REACTIONS (2)
  - Mental disorder [Unknown]
  - Weight increased [Unknown]
